FAERS Safety Report 10641472 (Version 1)
Quarter: 2014Q4

REPORT INFORMATION
  Report Type: Spontaneous
  Country: US (occurrence: None)
  Receive Date: 20141208
  Receipt Date: 20141208
  Transmission Date: 20150529
  Serious: Yes (Life-Threatening)
  Sender: FDA-Public Use
  Company Number: None

PATIENT

DRUGS (2)
  1. ADVIL [Suspect]
     Active Substance: IBUPROFEN
     Indication: CHILLS
     Dosage: 500, BID, ORAL
     Route: 048
     Dates: start: 20140830, end: 20140915
  2. ADVIL [Suspect]
     Active Substance: IBUPROFEN
     Indication: PYREXIA
     Dosage: 500, BID, ORAL
     Route: 048
     Dates: start: 20140830, end: 20140915

REACTIONS (1)
  - Headache [None]

NARRATIVE: CASE EVENT DATE: 20140801
